FAERS Safety Report 7609963 (Version 2)
Quarter: 2012Q4

REPORT INFORMATION
  Report Type: 
  Country: PT (occurrence: PT)
  Receive Date: 20100928
  Receipt Date: 20121228
  Transmission Date: 20130627
  Serious: Yes (Death, Other)
  Sender: FDA-Public Use
  Company Number: PT-ROCHE-728505

PATIENT

DRUGS (4)
  1. CAPECITABINE [Suspect]
     Indication: RECTAL CANCER
     Route: 048
  2. TEGAFUR\URACIL [Suspect]
     Indication: RECTAL CANCER
     Dosage: IN THREE FRACTIONS/DAY, 5 DAYS/WEEK.
     Route: 065
  3. FOLINIC ACID [Suspect]
     Indication: RECTAL CANCER
     Dosage: IN THREE FRACTIONS/DAY, 5 DAYS/WEEK
     Route: 065
  4. FLUOROURACIL [Suspect]
     Indication: RECTAL CANCER
     Dosage: IN A CONTINUOUS INFUSION, 5 DAYS/WEEK.FORM: INFUSION
     Route: 042

REACTIONS (15)
  - Pulmonary embolism [Fatal]
  - Diarrhoea [Unknown]
  - Vomiting [Unknown]
  - Radiation skin injury [Unknown]
  - Anaemia [Unknown]
  - Blood creatinine increased [Unknown]
  - Palmar-plantar erythrodysaesthesia syndrome [Unknown]
  - Blood bilirubin abnormal [Unknown]
  - Paraesthesia [Unknown]
  - Neutropenia [Unknown]
  - Wound dehiscence [Unknown]
  - Subileus [Unknown]
  - Fistula [Unknown]
  - Infection [Unknown]
  - Hypersensitivity [Unknown]
